FAERS Safety Report 23892220 (Version 1)
Quarter: 2024Q2

REPORT INFORMATION
  Report Type: Spontaneous
  Country: CN (occurrence: CN)
  Receive Date: 20240524
  Receipt Date: 20240524
  Transmission Date: 20240716
  Serious: Yes (Other)
  Sender: FDA-Public Use
  Company Number: CN-ROCHE-3568803

PATIENT
  Age: 67 Year
  Sex: Female
  Weight: 65 kg

DRUGS (3)
  1. XELODA [Suspect]
     Active Substance: CAPECITABINE
     Indication: Symptomatic treatment
     Dosage: APPROVAL NO. GYZZ H20073024 ; BID
     Route: 065
     Dates: start: 20240422, end: 20240423
  2. BEVACIZUMAB [Suspect]
     Active Substance: BEVACIZUMAB
     Indication: Symptomatic treatment
     Dosage: INTRAVENOUS DRIP; APPROVAL NO. GYZZ S20190040
     Route: 041
     Dates: start: 20240418, end: 20240418
  3. IRINOTECAN HYDROCHLORIDE [Suspect]
     Active Substance: IRINOTECAN HYDROCHLORIDE
     Indication: Symptomatic treatment
     Dosage: INTRAVENOUS DRIP; APPROVAL NO. GYZZ H20143127
     Route: 041
     Dates: start: 20240418, end: 20240418

REACTIONS (1)
  - Myelosuppression [Unknown]

NARRATIVE: CASE EVENT DATE: 20240422
